FAERS Safety Report 5728248-4 (Version None)
Quarter: 2008Q2

REPORT INFORMATION
  Report Type: 
  Country: None (occurrence: None)
  Receive Date: 20080506
  Receipt Date: 20080429
  Transmission Date: 20081010
  Serious: Yes (Death)
  Sender: FDA-Public Use
  Company Number: US-JNJFOC-20080203309

PATIENT
  Age: 17 Year
  Sex: Male

DRUGS (1)
  1. DURAGESIC-100 [Suspect]
     Indication: TOOTHACHE
     Route: 062

REACTIONS (2)
  - OFF LABEL USE [None]
  - UNEVALUABLE EVENT [None]
